FAERS Safety Report 10517460 (Version 5)
Quarter: 2015Q3

REPORT INFORMATION
  Report Type: Report from Study
  Country: US (occurrence: US)
  Receive Date: 20141014
  Receipt Date: 20150707
  Transmission Date: 20151125
  Serious: Yes (Hospitalization)
  Sender: FDA-Public Use
  Company Number: US-ACTELION-A-US2014-106440

PATIENT
  Age: 80 Year
  Sex: Male

DRUGS (23)
  1. MORPHINE [Concomitant]
     Active Substance: MORPHINE
  2. TEMAZEPAM. [Concomitant]
     Active Substance: TEMAZEPAM
  3. BUDOSAN [Concomitant]
  4. INSULIN [Concomitant]
     Active Substance: INSULIN NOS
  5. PREDNISONE. [Concomitant]
     Active Substance: PREDNISONE
  6. GABAPENTIN. [Concomitant]
     Active Substance: GABAPENTIN
  7. IMDUR [Concomitant]
     Active Substance: ISOSORBIDE MONONITRATE
  8. CRESTOR [Concomitant]
     Active Substance: ROSUVASTATIN CALCIUM
  9. DIGOXIN. [Concomitant]
     Active Substance: DIGOXIN
  10. FERROUS SULFATE [Concomitant]
     Active Substance: FERROUS SULFATE\FERROUS SULFATE, DRIED
  11. MAGNESIUM OXIDE. [Concomitant]
     Active Substance: MAGNESIUM OXIDE
  12. PREVACID [Concomitant]
     Active Substance: LANSOPRAZOLE
  13. TYVASO [Concomitant]
     Active Substance: TREPROSTINIL
  14. ASPIRIN. [Concomitant]
     Active Substance: ASPIRIN
  15. PRADAXA [Concomitant]
     Active Substance: DABIGATRAN ETEXILATE MESYLATE
  16. RANEXA [Concomitant]
     Active Substance: RANOLAZINE
  17. TRACLEER [Suspect]
     Active Substance: BOSENTAN
     Indication: PULMONARY ARTERIAL HYPERTENSION
     Dosage: 125 MG, BID
     Route: 048
     Dates: start: 201409
  18. DALIRESP [Concomitant]
     Active Substance: ROFLUMILAST
  19. METFORMIN [Concomitant]
     Active Substance: METFORMIN HYDROCHLORIDE
  20. SPIRIVA [Concomitant]
     Active Substance: TIOTROPIUM BROMIDE MONOHYDRATE
  21. BROVANA [Concomitant]
     Active Substance: ARFORMOTEROL TARTRATE
  22. SYNTHROID [Concomitant]
     Active Substance: LEVOTHYROXINE SODIUM
  23. FISH OIL [Concomitant]
     Active Substance: FISH OIL

REACTIONS (5)
  - Dyspnoea [Unknown]
  - Blood potassium decreased [Unknown]
  - Pneumonia [Unknown]
  - Chronic obstructive pulmonary disease [Unknown]
  - Respiratory disorder [Unknown]

NARRATIVE: CASE EVENT DATE: 20140927
